FAERS Safety Report 8574042-9 (Version None)
Quarter: 2012Q2

REPORT INFORMATION
  Report Type: 
  Country: None (occurrence: None)
  Receive Date: 20120423
  Receipt Date: 20100726
  Transmission Date: 20120825
  Serious: Yes (Other)
  Sender: FDA-Public Use
  Company Number: PHHY2010US30013

PATIENT
  Age: 86 Year
  Sex: Female

DRUGS (1)
  1. EXJADE [Suspect]
     Indication: IMPAIRED GASTRIC EMPTYING
     Dosage: ORAL ; 2000 MG, QD (3 TABLETS A DAY), ORAL
     Route: 048

REACTIONS (2)
  - LIVER DISORDER [None]
  - RENAL DISORDER [None]
